FAERS Safety Report 4946224-6 (Version None)
Quarter: 2006Q1

REPORT INFORMATION
  Report Type: 
  Country: None (occurrence: None)
  Receive Date: 20060201
  Receipt Date: 20051202
  Transmission Date: 20060701
  Serious: Yes (Hospitalization)
  Sender: FDA-Public Use
  Company Number: 2005PV005299

PATIENT
  Age: 71 Year
  Sex: Female
  Weight: 82.5547 kg

DRUGS (2)
  1. BYETTA [Suspect]
     Indication: DIABETES MELLITUS NON-INSULIN-DEPENDENT
     Dosage: 5 MCG;BID;SC
     Route: 058
     Dates: start: 20050901, end: 20051116
  2. NOVOLIN [Concomitant]

REACTIONS (4)
  - NAUSEA [None]
  - TOOTH FRACTURE [None]
  - TOOTHACHE [None]
  - WEIGHT DECREASED [None]
